FAERS Safety Report 9913594 (Version 2)
Quarter: 2014Q1

REPORT INFORMATION
  Report Type: Spontaneous
  Country: CA (occurrence: CA)
  Receive Date: 20140220
  Receipt Date: 20140220
  Transmission Date: 20141002
  Serious: Yes (Hospitalization)
  Sender: FDA-Public Use
  Company Number: CA-PFIZER INC-2012227107

PATIENT
  Age: 5 Decade
  Sex: Male
  Weight: 80 kg

DRUGS (8)
  1. EFFEXOR XR [Suspect]
     Indication: DEPRESSION
     Dosage: 37.5 MG, UNK
     Route: 048
     Dates: start: 200408
  2. EFFEXOR XR [Suspect]
     Dosage: 75 MG, UNK
     Route: 048
     Dates: start: 200410
  3. DESIPRAMINE [Concomitant]
     Dosage: 50MG/75MG ON ALTERNATE DAYS
     Route: 048
  4. LIPITOR [Concomitant]
     Dosage: 10 MG, DAILY
     Route: 048
  5. PANTOLOC [Concomitant]
     Dosage: 40 MG, 2X/DAY
     Route: 048
  6. VITAMIN B12 [Concomitant]
     Dosage: 1000 UG, 1X/DAY
     Route: 048
  7. B COMPLEX [Concomitant]
     Dosage: UNK
  8. IBUPROFEN [Concomitant]
     Dosage: 400 MG, 2X/DAY (MORNING AND BEDTIME)
     Route: 048

REACTIONS (3)
  - Homicidal ideation [Recovered/Resolved]
  - Abnormal behaviour [Recovered/Resolved]
  - Irritability [Recovered/Resolved]
